FAERS Safety Report 13738761 (Version 1)
Quarter: 2017Q3

REPORT INFORMATION
  Report Type: Spontaneous
  Country: US (occurrence: US)
  Receive Date: 20170710
  Receipt Date: 20170710
  Transmission Date: 20171127
  Serious: No
  Sender: FDA-Public Use
  Company Number: US-SAOL THERAPEUTICS-2017SAO00332

PATIENT
  Sex: Female

DRUGS (4)
  1. BACLOFEN. [Suspect]
     Active Substance: BACLOFEN
     Dosage: 50 ?G, \DAY
     Route: 037
  2. BACLOFEN. [Suspect]
     Active Substance: BACLOFEN
     Dosage: 62 ?G, \DAY
  3. BACLOFEN. [Suspect]
     Active Substance: BACLOFEN
     Indication: MUSCLE SPASTICITY
     Dosage: 75 ?G, ONCE
     Route: 037
     Dates: start: 20170201
  4. BACLOFEN. [Suspect]
     Active Substance: BACLOFEN
     Dosage: 67.46 ?G, \DAY
     Route: 037

REACTIONS (6)
  - Musculoskeletal stiffness [Unknown]
  - Therapy non-responder [Unknown]
  - Hypotonia [Unknown]
  - Post lumbar puncture syndrome [Recovering/Resolving]
  - Hypotension [Unknown]
  - Headache [Recovering/Resolving]
